FAERS Safety Report 24561102 (Version 5)
Quarter: 2024Q4

REPORT INFORMATION
  Report Type: Spontaneous
  Country: JP (occurrence: JP)
  Receive Date: 20241029
  Receipt Date: 20241225
  Transmission Date: 20250115
  Serious: Yes (Death, Life-Threatening, Other)
  Sender: ALEXION PHARMACEUTICALS
  Company Number: JP-ASTRAZENECA-240108516_063610_P_1

PATIENT
  Age: 83 Year
  Weight: 75 kg

DRUGS (8)
  1. LOKELMA [Suspect]
     Active Substance: SODIUM ZIRCONIUM CYCLOSILICATE
     Indication: Hyperkalaemia
     Dosage: 5 GRAM, BID
     Route: 050
  2. FLUMAZENIL [Suspect]
     Active Substance: FLUMAZENIL
     Indication: Altered state of consciousness
     Dosage: DOSE UNKNOWN
     Route: 065
  3. FLUMAZENIL [Suspect]
     Active Substance: FLUMAZENIL
     Dosage: DOSE UNKNOWN
     Route: 065
  4. LANSOPRAZOLE [Concomitant]
     Active Substance: LANSOPRAZOLE
     Indication: Stress ulcer
     Dosage: 15 MILLIGRAM
     Route: 050
  5. LANSOPRAZOLE [Concomitant]
     Active Substance: LANSOPRAZOLE
     Indication: Prophylaxis
     Dosage: UNK
  6. ASPIRIN [Concomitant]
     Active Substance: ASPIRIN
     Indication: Cerebral infarction
     Dosage: 0.1 GRAM, QD
     Route: 050
  7. ASPIRIN [Concomitant]
     Active Substance: ASPIRIN
     Dosage: 0.1 GRAM, QD
     Route: 050
  8. ASPIRIN [Concomitant]
     Active Substance: ASPIRIN
     Dosage: 0.1 GRAM, QD
     Route: 050

REACTIONS (12)
  - Gastric haemorrhage [Unknown]
  - Off label use [Unknown]
  - X-ray gastrointestinal tract abnormal [Fatal]
  - Altered state of consciousness [Unknown]
  - Telangiectasia [Fatal]
  - Urine output increased [Unknown]
  - Pleural effusion [Unknown]
  - Ascites [Unknown]
  - Multiple organ dysfunction syndrome [Fatal]
  - Urine output decreased [Unknown]
  - Azotaemia [Unknown]
  - Acute hepatic failure [Unknown]
